FAERS Safety Report 5863639-2 (Version None)
Quarter: 2008Q3

REPORT INFORMATION
  Report Type: 
  Country: None (occurrence: None)
  Receive Date: 20080828
  Receipt Date: 20080818
  Transmission Date: 20090109
  Serious: Yes (Other)
  Sender: FDA-Public Use
  Company Number: ZA-PFIZER INC-2008069182

PATIENT
  Sex: Female

DRUGS (2)
  1. LYRICA [Suspect]
     Route: 048
  2. DURAGESIC-100 [Concomitant]
     Route: 062

REACTIONS (2)
  - OXYGEN SATURATION DECREASED [None]
  - SOMNOLENCE [None]
